FAERS Safety Report 10060663 (Version 2)
Quarter: 2014Q2

REPORT INFORMATION
  Report Type: Spontaneous
  Country: JP (occurrence: JP)
  Receive Date: 20140404
  Receipt Date: 20140404
  Transmission Date: 20141212
  Serious: Yes (Hospitalization)
  Sender: FDA-Public Use
  Company Number: JP-TAKEDA-TCI2013A04795

PATIENT
  Age: 65 Year
  Sex: Male

DRUGS (5)
  1. LIOVEL COMBINATION TABLETS LD [Suspect]
     Indication: DIABETES MELLITUS
     Dosage: 1 DF, QD
     Route: 048
  2. CRESTOR [Concomitant]
     Dosage: UNK
     Route: 048
  3. MEDET [Concomitant]
     Dosage: UNK
     Route: 048
  4. RETICOLAN [Concomitant]
     Dosage: UNK
     Route: 048
  5. KINEX                              /00301301/ [Concomitant]
     Dosage: UNK
     Route: 048

REACTIONS (1)
  - Lung disorder [Unknown]
